FAERS Safety Report 4798934-1 (Version None)
Quarter: 2005Q4

REPORT INFORMATION
  Report Type: 
  Country: None (occurrence: None)
  Receive Date: 20051014
  Receipt Date: 20050623
  Transmission Date: 20060501
  Serious: Yes (Other)
  Sender: FDA-Public Use
  Company Number: PHEH2005US07182

PATIENT
  Age: 57 Year
  Sex: Female

DRUGS (1)
  1. ZOMETA [Suspect]
     Indication: BREAST CANCER METASTATIC
     Dosage: 4 MG, UNK
     Route: 042
     Dates: start: 20020101

REACTIONS (6)
  - BONE PAIN [None]
  - ENDODONTIC PROCEDURE [None]
  - OSTEOLYSIS [None]
  - OSTEOMYELITIS [None]
  - PURULENCE [None]
  - TOOTH EXTRACTION [None]
